FAERS Safety Report 12222461 (Version 1)
Quarter: 2016Q1

REPORT INFORMATION
  Report Type: Spontaneous
  Country: US (occurrence: US)
  Receive Date: 20160330
  Receipt Date: 20160330
  Transmission Date: 20160526
  Serious: No
  Sender: FDA-Public Use
  Company Number: US-B.I. PHARMACEUTICALS,INC./RIDGEFIELD-2016-BI-16195BP

PATIENT
  Sex: Female

DRUGS (1)
  1. ZANTAC [Suspect]
     Active Substance: RANITIDINE HYDROCHLORIDE
     Indication: EATING DISORDER
     Dosage: 2 ANZ
     Route: 048
     Dates: start: 20160312

REACTIONS (2)
  - Pruritus generalised [Unknown]
  - Off label use [Unknown]

NARRATIVE: CASE EVENT DATE: 201603
